FAERS Safety Report 25641645 (Version 2)
Quarter: 2025Q3

REPORT INFORMATION
  Report Type: Spontaneous
  Country: TR (occurrence: TR)
  Receive Date: 20250804
  Receipt Date: 20250929
  Transmission Date: 20251020
  Serious: Yes (Life-Threatening, Hospitalization)
  Sender: NOVARTIS
  Company Number: TR-002147023-NVSC2025TR122505

PATIENT
  Age: 10 Year
  Sex: Female
  Weight: 33.15 kg

DRUGS (1)
  1. CYCLOSPORINE [Suspect]
     Active Substance: CYCLOSPORINE
     Indication: Prophylaxis
     Dosage: 100 MG, BID (50 MG AMPULE)
     Route: 042
     Dates: start: 20250726, end: 20250726

REACTIONS (6)
  - Anaphylactic shock [Recovered/Resolved]
  - Respiratory depression [Recovered/Resolved]
  - Hypotension [Recovering/Resolving]
  - Tachycardia [Recovered/Resolved]
  - Visual impairment [Recovered/Resolved]
  - Pruritus [Recovered/Resolved]

NARRATIVE: CASE EVENT DATE: 20250726
